FAERS Safety Report 17388448 (Version 4)
Quarter: 2022Q4

REPORT INFORMATION
  Report Type: Report from Study
  Country: US (occurrence: US)
  Receive Date: 20200206
  Receipt Date: 20221018
  Transmission Date: 20230112
  Serious: Yes (Hospitalization)
  Sender: FDA-Public Use
  Company Number: US-SHIRE-US202003914

PATIENT
  Age: 51 Year
  Sex: Female

DRUGS (1)
  1. HUMAN IMMUNOGLOBULIN G [Suspect]
     Active Substance: HUMAN IMMUNOGLOBULIN G
     Indication: Product used for unknown indication
     Dosage: UNK
     Route: 042

REACTIONS (7)
  - Impaired healing [Not Recovered/Not Resolved]
  - Leg amputation [Not Recovered/Not Resolved]
  - Gout [Recovered/Resolved]
  - Pyrexia [Recovered/Resolved]
  - Therapy interrupted [Not Recovered/Not Resolved]
  - Body temperature increased [Not Recovered/Not Resolved]
  - Tremor [Not Recovered/Not Resolved]

NARRATIVE: CASE EVENT DATE: 20200124
